FAERS Safety Report 5448751-4 (Version None)
Quarter: 2007Q3

REPORT INFORMATION
  Report Type: 
  Country: None (occurrence: None)
  Receive Date: 20070911
  Receipt Date: 20070903
  Transmission Date: 20080115
  Serious: Yes (Other)
  Sender: FDA-Public Use
  Company Number: B0486401A

PATIENT
  Sex: Female

DRUGS (1)
  1. AROPAX [Suspect]
     Dates: start: 20040101

REACTIONS (3)
  - DEPRESSION [None]
  - MORBID THOUGHTS [None]
  - PANIC ATTACK [None]
